FAERS Safety Report 6737921-0 (Version None)
Quarter: 2010Q2

REPORT INFORMATION
  Report Type: 
  Country: None (occurrence: None)
  Receive Date: 20100524
  Receipt Date: 20100511
  Transmission Date: 20101027
  Serious: Yes (Other)
  Sender: FDA-Public Use
  Company Number: US-ROCHE-553524

PATIENT
  Age: 80 Year
  Sex: Female

DRUGS (1)
  1. BONIVA [Suspect]
     Indication: DRUG USE FOR UNKNOWN INDICATION
     Dosage: DRUG TAKEN FOR MORE THAN TWO YEARS.
     Route: 065

REACTIONS (1)
  - HIP FRACTURE [None]
